FAERS Safety Report 21992381 (Version 2)
Quarter: 2023Q1

REPORT INFORMATION
  Report Type: Spontaneous
  Country: CN (occurrence: CN)
  Receive Date: 20230215
  Receipt Date: 20230224
  Transmission Date: 20230417
  Serious: Yes (Hospitalization, Other)
  Sender: FDA-Public Use
  Company Number: CN-MACLEODS PHARMACEUTICALS US LTD-MAC2023039758

PATIENT

DRUGS (2)
  1. TENOFOVIR DISOPROXIL [Suspect]
     Active Substance: TENOFOVIR DISOPROXIL
     Indication: Chronic hepatitis B
     Dosage: 300 MILLIGRAM, QD
     Route: 065
  2. ENTECAVIR [Concomitant]
     Active Substance: ENTECAVIR
     Indication: Chronic hepatitis B
     Dosage: 0.5 MILLIGRAM, QD
     Route: 065

REACTIONS (6)
  - Hyperparathyroidism [Recovered/Resolved]
  - Osteopenia [Recovered/Resolved]
  - Nephrolithiasis [Recovered/Resolved]
  - Hyperparathyroidism secondary [Recovering/Resolving]
  - Parathyroid tumour [Recovering/Resolving]
  - Osteoporosis [Recovering/Resolving]
